FAERS Safety Report 6399565-2 (Version None)
Quarter: 2009Q4

REPORT INFORMATION
  Report Type: 
  Country: None (occurrence: None)
  Receive Date: 20091013
  Receipt Date: 20091013
  Transmission Date: 20100525
  Serious: Yes (Life-Threatening)
  Sender: FDA-Public Use
  Company Number: None

PATIENT
  Age: 45 Year
  Sex: Female
  Weight: 104.7809 kg

DRUGS (1)
  1. CITALOPRAM HYDROBROMIDE [Suspect]
     Dosage: 20MG 1/2 TO 10MG FOR 1 WK
     Dates: start: 20090904, end: 20090906

REACTIONS (8)
  - COUGH [None]
  - DIZZINESS [None]
  - DYSGEUSIA [None]
  - OBSTRUCTIVE AIRWAYS DISORDER [None]
  - PALPITATIONS [None]
  - URTICARIA [None]
  - VOMITING [None]
  - WHEEZING [None]
